FAERS Safety Report 25246031 (Version 1)
Quarter: 2025Q2

REPORT INFORMATION
  Report Type: Spontaneous
  Country: BG (occurrence: BG)
  Receive Date: 20250428
  Receipt Date: 20250428
  Transmission Date: 20250716
  Serious: Yes (Other)
  Sender: SANDOZ
  Company Number: BG-SANDOZ-SDZ2024BG033920

PATIENT
  Age: 71 Year
  Sex: Male

DRUGS (6)
  1. MOXONIDINE [Suspect]
     Active Substance: MOXONIDINE
     Indication: Hypertension
     Dosage: 0.2 MG ONCE  IN THE EVENING
     Route: 065
     Dates: start: 2015
  2. OLMESARTAN MEDOXOMIL AND HYDROCHLOROTHIAZIDE [Suspect]
     Active Substance: HYDROCHLOROTHIAZIDE\OLMESARTAN MEDOXOMIL
     Indication: Hypertension
     Route: 065
  3. AMLODIPINE BESYLATE\OLMESARTAN MEDOXOMIL [Suspect]
     Active Substance: AMLODIPINE BESYLATE\OLMESARTAN MEDOXOMIL
     Route: 065
     Dates: start: 202202
  4. AMLODIPINE BESYLATE\OLMESARTAN MEDOXOMIL [Suspect]
     Active Substance: AMLODIPINE BESYLATE\OLMESARTAN MEDOXOMIL
     Indication: Hypertension
     Route: 065
     Dates: start: 202207, end: 202302
  5. VALSARTAN [Suspect]
     Active Substance: VALSARTAN
     Indication: Hypertension
     Dosage: 160 MG, QD (ONCE IN THE MORNING)
     Route: 065
     Dates: start: 2015, end: 2018
  6. HYDROCHLOROTHIAZIDE\VALSARTAN [Suspect]
     Active Substance: HYDROCHLOROTHIAZIDE\VALSARTAN
     Indication: Hypertension
     Route: 065
     Dates: start: 2018, end: 2022

REACTIONS (3)
  - Squamous cell carcinoma [Unknown]
  - Basal cell carcinoma [Unknown]
  - Suspected product contamination [Unknown]
